FAERS Safety Report 18006484 (Version 1)
Quarter: 2020Q3

REPORT INFORMATION
  Report Type: Spontaneous
  Country: US (occurrence: US)
  Receive Date: 20200710
  Receipt Date: 20200710
  Transmission Date: 20201103
  Serious: Yes (Other)
  Sender: FDA-Public Use
  Company Number: None

PATIENT
  Age: 43 Year
  Sex: Female
  Weight: 76.41 kg

DRUGS (22)
  1. MONTELUKAST [Concomitant]
     Active Substance: MONTELUKAST SODIUM
  2. ASMANEX [Concomitant]
     Active Substance: MOMETASONE FUROATE
  3. TIZANIDINE. [Concomitant]
     Active Substance: TIZANIDINE
  4. FAMOTIDINE. [Concomitant]
     Active Substance: FAMOTIDINE
  5. ALLERCLEAR D24HR [Concomitant]
  6. KEPPRA [Concomitant]
     Active Substance: LEVETIRACETAM
  7. PROAIR HFA [Concomitant]
     Active Substance: ALBUTEROL SULFATE
  8. MAGNESIUM [Concomitant]
     Active Substance: MAGNESIUM
  9. RIZATRIPTAN. [Concomitant]
     Active Substance: RIZATRIPTAN
  10. EMGALITY [Suspect]
     Active Substance: GALCANEZUMAB-GNLM
     Indication: MIGRAINE
     Dates: start: 20200705
  11. PAZEO [Concomitant]
     Active Substance: OLOPATADINE HYDROCHLORIDE
  12. DOXEPIN [Concomitant]
     Active Substance: DOXEPIN
  13. APPLE CIDER VINEGAR [Concomitant]
     Active Substance: APPLE CIDER VINEGAR
  14. PERCOCET [Concomitant]
     Active Substance: ACETAMINOPHEN\OXYCODONE HYDROCHLORIDE
  15. ONDANSETRON [Concomitant]
     Active Substance: ONDANSETRON
  16. PREDNISONE. [Concomitant]
     Active Substance: PREDNISONE
  17. WOMEN^S VITAMIN [Concomitant]
  18. DYMISTA [Concomitant]
     Active Substance: AZELASTINE HYDROCHLORIDE\FLUTICASONE PROPIONATE
  19. MELOXICAM. [Concomitant]
     Active Substance: MELOXICAM
  20. OXYBUTYNIN. [Concomitant]
     Active Substance: OXYBUTYNIN CHLORIDE
  21. PROBIOTICS [Concomitant]
     Active Substance: PROBIOTICS NOS
  22. VITAMIN C [Concomitant]
     Active Substance: ASCORBIC ACID

REACTIONS (8)
  - Abdominal distension [None]
  - Abdominal pain [None]
  - Insomnia [None]
  - Mood altered [None]
  - Abdominal discomfort [None]
  - Heart rate increased [None]
  - Migraine [None]
  - Irritability [None]

NARRATIVE: CASE EVENT DATE: 20200705
